FAERS Safety Report 11520148 (Version 1)
Quarter: 2015Q3

REPORT INFORMATION
  Report Type: Spontaneous
  Country: US (occurrence: US)
  Receive Date: 20150918
  Receipt Date: 20150918
  Transmission Date: 20151125
  Serious: No
  Sender: FDA-Public Use
  Company Number: US-RB-070928-14

PATIENT

DRUGS (2)
  1. MUCINEX [Suspect]
     Active Substance: GUAIFENESIN
     Indication: PRODUCT USED FOR UNKNOWN INDICATION
     Dosage: 600MG. DRUG WAS LAST USED ON 20-NOV-2014 AT 3:00PM, PATIENT TOOK 1 TABLET.,FREQUENCY UNK
     Route: 065
     Dates: start: 20141120
  2. IBUPROFEN 200 [Suspect]
     Active Substance: IBUPROFEN
     Indication: PRODUCT USED FOR UNKNOWN INDICATION
     Dosage: 600MG. PATIENT TOOK THE DRUG AT AN UNKNOWN DOSE,FREQUENCY UNK
     Route: 065

REACTIONS (4)
  - Erythema [Not Recovered/Not Resolved]
  - Skin irritation [Unknown]
  - Burning sensation [Unknown]
  - Pruritus [Recovered/Resolved]

NARRATIVE: CASE EVENT DATE: 20141120
